FAERS Safety Report 11865201 (Version 3)
Quarter: 2017Q1

REPORT INFORMATION
  Report Type: Report from Study
  Country: None (occurrence: NZ)
  Receive Date: 20151223
  Receipt Date: 20170318
  Transmission Date: 20170428
  Serious: Yes (Hospitalization)
  Sender: FDA-Public Use
  Company Number: NZ-ABBVIE-15K-118-1521169-00

PATIENT
  Sex: Male

DRUGS (1)
  1. HUMIRA [Suspect]
     Active Substance: ADALIMUMAB
     Indication: PRODUCT USED FOR UNKNOWN INDICATION
     Route: 058
     Dates: start: 20151016, end: 20151210

REACTIONS (7)
  - Gastrointestinal disorder [Recovering/Resolving]
  - Crohn^s disease [Recovered/Resolved]
  - Intestinal congestion [Recovering/Resolving]
  - Gastrointestinal pain [Recovering/Resolving]
  - Large intestine erosion [Recovering/Resolving]
  - Gastrointestinal inflammation [Recovering/Resolving]
  - Diarrhoea [Recovering/Resolving]

NARRATIVE: CASE EVENT DATE: 2015
